FAERS Safety Report 11888220 (Version 1)
Quarter: 2016Q1

REPORT INFORMATION
  Report Type: Report from Study
  Country: US (occurrence: US)
  Receive Date: 20160105
  Receipt Date: 20160105
  Transmission Date: 20160526
  Serious: Yes (Other)
  Sender: FDA-Public Use
  Company Number: PHEH2015US027259

PATIENT
  Age: 66 Year

DRUGS (4)
  1. AFINITOR [Suspect]
     Active Substance: EVEROLIMUS
     Indication: SKIN DISORDER
  2. MOUTH WASH [Concomitant]
     Indication: STOMATITIS
     Route: 065
  3. AFINITOR [Suspect]
     Active Substance: EVEROLIMUS
     Indication: ACNE
  4. AFINITOR [Suspect]
     Active Substance: EVEROLIMUS
     Indication: STOMATITIS
     Dosage: 40 MG, QD
     Route: 048
     Dates: start: 20151008, end: 20151116

REACTIONS (3)
  - Skin disorder [Recovered/Resolved]
  - Product use issue [Unknown]
  - Acne [Recovered/Resolved]

NARRATIVE: CASE EVENT DATE: 20151008
